FAERS Safety Report 6149301-X (Version None)
Quarter: 2009Q2

REPORT INFORMATION
  Report Type: 
  Country: None (occurrence: None)
  Receive Date: 20090409
  Receipt Date: 20090403
  Transmission Date: 20091009
  Serious: Yes (Death, Hospitalization, Other)
  Sender: FDA-Public Use
  Company Number: US-BAYER-200917123NA

PATIENT
  Age: 84 Year
  Sex: Male

DRUGS (5)
  1. LEUKINE [Suspect]
     Indication: DRUG USE FOR UNKNOWN INDICATION
     Route: 058
  2. VIDAZA [Concomitant]
  3. METFORMIN HCL [Concomitant]
  4. GLIPIZIDE [Concomitant]
  5. OMEPRAZOLE [Concomitant]

REACTIONS (6)
  - CARDIOPULMONARY FAILURE [None]
  - DEHYDRATION [None]
  - METABOLIC ACIDOSIS [None]
  - PANCYTOPENIA [None]
  - PRURITUS [None]
  - RENAL FAILURE ACUTE [None]
